FAERS Safety Report 23487477 (Version 1)
Quarter: 2024Q1

REPORT INFORMATION
  Report Type: Spontaneous
  Country: US (occurrence: US)
  Receive Date: 20240206
  Receipt Date: 20240206
  Transmission Date: 20240410
  Serious: Yes (Hospitalization, Other)
  Sender: FDA-Public Use
  Company Number: ENDG24-00347

PATIENT

DRUGS (2)
  1. DANTRIUM [Suspect]
     Active Substance: DANTROLENE SODIUM
     Indication: Hyperthermia malignant
     Dosage: UNK UNKNOWN, UNKNOWN
     Route: 042
     Dates: start: 20180530
  2. SUCCINYLCHOLINE [Concomitant]
     Active Substance: SUCCINYLCHOLINE
     Indication: Endotracheal intubation
     Dosage: UNK UNKNOWN, UNKNOWN
     Route: 065

REACTIONS (6)
  - Blindness [Not Recovered/Not Resolved]
  - Intraocular pressure increased [Not Recovered/Not Resolved]
  - Aura [Not Recovered/Not Resolved]
  - Retinal detachment [Not Recovered/Not Resolved]
  - Retinal tear [Not Recovered/Not Resolved]
  - Injection site extravasation [Unknown]

NARRATIVE: CASE EVENT DATE: 20180101
